FAERS Safety Report 4928167-7 (Version None)
Quarter: 2006Q1

REPORT INFORMATION
  Report Type: 
  Country: None (occurrence: None)
  Receive Date: 20060223
  Receipt Date: 20060207
  Transmission Date: 20060701
  Serious: Yes (Hospitalization)
  Sender: FDA-Public Use
  Company Number: DSA_27760_2006

PATIENT
  Sex: Female
  Weight: 4.35 kg

DRUGS (5)
  1. TAVOR [Suspect]
     Dosage: DF Q DAY TRAN-P
     Dates: end: 20051116
  2. TAVOR [Suspect]
     Dosage: DF Q DAY TRAN-P
  3. TREVILOR - SLOW RELEASE [Suspect]
     Dosage: 75 MG QID TRAN-P
     Dates: end: 20051116
  4. ABILIFY [Concomitant]
  5. ZYPREXA [Concomitant]

REACTIONS (3)
  - DRUG EXPOSURE DURING PREGNANCY [None]
  - NEONATAL INFECTION [None]
  - NEONATAL RESPIRATORY FAILURE [None]
